FAERS Safety Report 5263811-9 (Version None)
Quarter: 2007Q1

REPORT INFORMATION
  Report Type: 
  Country: None (occurrence: None)
  Receive Date: 20070313
  Receipt Date: 20070308
  Transmission Date: 20070707
  Serious: Yes (Hospitalization)
  Sender: FDA-Public Use
  Company Number: US-GLAXOSMITHKLINE-A0642449A

PATIENT
  Age: 60 Year
  Sex: Male

DRUGS (5)
  1. COREG [Suspect]
     Indication: HYPERTENSION
     Dosage: 3.125MG PER DAY
     Route: 048
     Dates: start: 20060601, end: 20070301
  2. HYDROCHLOROTHIAZIDE [Concomitant]
  3. ACEON [Concomitant]
  4. AGGRENOX [Concomitant]
  5. LIPITOR [Concomitant]

REACTIONS (5)
  - BLINDNESS [None]
  - BLOOD PRESSURE INCREASED [None]
  - HEART RATE DECREASED [None]
  - HYPOAESTHESIA [None]
  - PALPITATIONS [None]
